FAERS Safety Report 19383827 (Version 2)
Quarter: 2021Q2

REPORT INFORMATION
  Report Type: Report from Study
  Country: NL (occurrence: NL)
  Receive Date: 20210607
  Receipt Date: 20210615
  Transmission Date: 20210717
  Serious: Yes (Hospitalization, Other)
  Sender: FDA-Public Use
  Company Number: NL-PFIZER INC-2021484555

PATIENT
  Age: 32 Year
  Sex: Female
  Weight: 83 kg

DRUGS (9)
  1. SULPRIDE [Suspect]
     Active Substance: SULPIRIDE
     Dosage: UNK
  2. MELOXICAM. [Concomitant]
     Active Substance: MELOXICAM
     Dosage: UNK
  3. OXAZEPAM. [Concomitant]
     Active Substance: OXAZEPAM
  4. ELIQUIS [Concomitant]
     Active Substance: APIXABAN
     Indication: ANTICOAGULANT THERAPY
     Dosage: 5MG
  5. OMEPRAZOLE. [Concomitant]
     Active Substance: OMEPRAZOLE
     Dosage: UNK
  6. DIAZEPAM. [Concomitant]
     Active Substance: DIAZEPAM
  7. TERIFLUNOMIDE. [Suspect]
     Active Substance: TERIFLUNOMIDE
     Indication: RELAPSING-REMITTING MULTIPLE SCLEROSIS
     Dosage: 14 MG, EVERY DAY
     Route: 048
     Dates: start: 20210127
  8. ETHINYLESTRADIOL/LEVONORGESTREL [Suspect]
     Active Substance: ETHINYL ESTRADIOL\LEVONORGESTREL
     Indication: ENDOMETRIOSIS
  9. TERIFLUNOMIDE. [Suspect]
     Active Substance: TERIFLUNOMIDE
     Dosage: 14 MG,EVERY DAY
     Route: 048
     Dates: start: 20210210

REACTIONS (9)
  - Sensory disturbance [Recovering/Resolving]
  - Uhthoff^s phenomenon [Not Recovered/Not Resolved]
  - Paraesthesia [Recovering/Resolving]
  - Atopic keratoconjunctivitis [Unknown]
  - Toxicity to various agents [Recovered/Resolved]
  - Deep vein thrombosis [Recovering/Resolving]
  - Fear of injection [Not Recovered/Not Resolved]
  - Gait disturbance [Recovering/Resolving]
  - Alopecia [Recovering/Resolving]

NARRATIVE: CASE EVENT DATE: 202104
